FAERS Safety Report 4457617-8 (Version None)
Quarter: 2004Q3

REPORT INFORMATION
  Report Type: 
  Country: None (occurrence: None)
  Receive Date: 20040922
  Receipt Date: 20040909
  Transmission Date: 20050211
  Serious: Yes (Hospitalization, Other)
  Sender: FDA-Public Use
  Company Number: GBWYE805204JUN04

PATIENT
  Age: 39 Year
  Sex: Male

DRUGS (15)
  1. RAPAMUNE [Suspect]
     Indication: IMMUNOSUPPRESSANT DRUG THERAPY
     Dosage: 5 MG 1X PER 1 DAY ORAL
     Route: 048
     Dates: start: 20031121
  2. CELLCEPT [Suspect]
     Indication: IMMUNOSUPPRESSANT DRUG THERAPY
     Dosage: 1 G 2X PER 1 DAY ORAL
     Route: 048
     Dates: start: 20031121
  3. PREDNISOLONE [Suspect]
     Indication: IMMUNOSUPPRESSANT DRUG THERAPY
     Dosage: 20 MG 1X PER 1 DAY ORAL
     Route: 048
     Dates: start: 20031121
  4. ZENEPAX (DACLIZUMAB, , 0) [Suspect]
     Indication: IMMUNOSUPPRESSANT DRUG THERAPY
     Dosage: 75 MG INTRAVENOUS
     Route: 042
     Dates: start: 20031204, end: 20031204
  5. ZENEPAX (DACLIZUMAB, , 0) [Suspect]
     Indication: IMMUNOSUPPRESSANT DRUG THERAPY
     Dosage: 75 MG INTRAVENOUS
     Route: 042
     Dates: start: 20031211
  6. ASPIRIN [Concomitant]
  7. OMEPRAZOLE [Concomitant]
  8. ALFACALCIDOL (ALFACALCIDOL) [Concomitant]
  9. ACETAMINOPHEN [Concomitant]
  10. ATORVASTATIN (ATORVASTATIN) [Concomitant]
  11. GANCICLOVIR SODIUM [Concomitant]
  12. DOXAZOSIN (DOXAZOSIN) [Concomitant]
  13. ATENOLOL [Concomitant]
  14. FERROUS SULPHATE (FERROUS SULFATE) [Concomitant]
  15. SENNA (SENNA) [Concomitant]

REACTIONS (13)
  - ABDOMINAL PAIN UPPER [None]
  - BLOOD CREATININE INCREASED [None]
  - CHEST PAIN [None]
  - ELECTROCARDIOGRAM T WAVE ABNORMAL [None]
  - HAEMOGLOBIN DECREASED [None]
  - HYPERTENSION [None]
  - NAUSEA [None]
  - OEDEMA PERIPHERAL [None]
  - POST PROCEDURAL COMPLICATION [None]
  - PULMONARY OEDEMA [None]
  - SCROTAL SWELLING [None]
  - URINARY TRACT DISORDER [None]
  - WEIGHT INCREASED [None]
